FAERS Safety Report 18072125 (Version 18)
Quarter: 2021Q3

REPORT INFORMATION
  Report Type: Spontaneous
  Country: US (occurrence: US)
  Receive Date: 20200727
  Receipt Date: 20210909
  Transmission Date: 20211014
  Serious: No
  Sender: FDA-Public Use
  Company Number: US-GLAXOSMITHKLINE-US2020AMR141334

PATIENT
  Age: 73 Year
  Sex: Female
  Weight: 62.87 kg

DRUGS (14)
  1. ZEJULA [Suspect]
     Active Substance: NIRAPARIB
     Dosage: 100 MG, QD
     Route: 048
  2. PFIZER?BIONTECH COVID?19 VACCINE [Concomitant]
     Active Substance: TOZINAMERAN
     Indication: COVID-19 PROPHYLAXIS
     Dosage: UNK
  3. ZEJULA [Suspect]
     Active Substance: NIRAPARIB
     Indication: OVARIAN CANCER
     Dosage: 100 MG, QD
     Route: 048
     Dates: start: 20200715
  4. ZEJULA [Suspect]
     Active Substance: NIRAPARIB
     Dosage: 100 MG, QD
     Route: 048
  5. ZEJULA [Suspect]
     Active Substance: NIRAPARIB
     Dosage: 100 MG, QD
     Route: 048
  6. MAGNESIUM OXIDE. [Suspect]
     Active Substance: MAGNESIUM OXIDE
     Indication: CONSTIPATION
     Dosage: UNK UNK, QD
  7. ZEJULA [Suspect]
     Active Substance: NIRAPARIB
     Indication: FALLOPIAN TUBE CANCER
     Dosage: 100 MG, QD
     Route: 048
     Dates: start: 20200714
  8. ZEJULA [Suspect]
     Active Substance: NIRAPARIB
     Dosage: 100 MG, QD
     Route: 048
  9. ZEJULA [Suspect]
     Active Substance: NIRAPARIB
     Dosage: 100 MG, QD
     Route: 048
  10. ZEJULA [Suspect]
     Active Substance: NIRAPARIB
     Dosage: 100 MG, QD
     Route: 048
  11. ZEJULA [Suspect]
     Active Substance: NIRAPARIB
     Dosage: 100 MG, QD
  12. ZEJULA [Suspect]
     Active Substance: NIRAPARIB
     Dosage: 100 MG, QD
     Route: 048
  13. ZEJULA [Suspect]
     Active Substance: NIRAPARIB
     Dosage: 100 MG, QD
     Route: 048
  14. BUSPAR [Suspect]
     Active Substance: BUSPIRONE HYDROCHLORIDE
     Indication: PRODUCT USED FOR UNKNOWN INDICATION
     Dosage: UNK

REACTIONS (47)
  - Coagulopathy [Unknown]
  - Tinnitus [Unknown]
  - Irritable bowel syndrome [Not Recovered/Not Resolved]
  - Urinary tract infection [Unknown]
  - Discomfort [Unknown]
  - Drug monitoring procedure not performed [Unknown]
  - Anxiety [Not Recovered/Not Resolved]
  - Nausea [Unknown]
  - Headache [Unknown]
  - Nocturia [Unknown]
  - Adverse drug reaction [Unknown]
  - Back pain [Recovering/Resolving]
  - Back disorder [Unknown]
  - Poor quality sleep [Unknown]
  - Insomnia [Unknown]
  - Colitis [Unknown]
  - Alanine aminotransferase increased [Not Recovered/Not Resolved]
  - Blood pressure increased [Unknown]
  - Vitamin D decreased [Unknown]
  - Muscular weakness [Unknown]
  - Glomerular filtration rate decreased [Unknown]
  - Condition aggravated [Unknown]
  - Carbohydrate antigen 125 increased [Recovered/Resolved]
  - Feeling of despair [Recovered/Resolved]
  - Hot flush [Unknown]
  - Constipation [Recovering/Resolving]
  - Inflammation [Unknown]
  - Sleep disorder [Unknown]
  - Blood cholesterol abnormal [Not Recovered/Not Resolved]
  - Dizziness [Unknown]
  - Alpha 1 foetoprotein increased [Unknown]
  - Blood pressure fluctuation [Unknown]
  - Bursitis [Recovering/Resolving]
  - Underdose [Unknown]
  - Drug hypersensitivity [Unknown]
  - Intervertebral disc protrusion [Unknown]
  - Diarrhoea [Unknown]
  - Gait disturbance [Unknown]
  - Off label use [Unknown]
  - Ventricular extrasystoles [Unknown]
  - Pain in extremity [Unknown]
  - Sciatica [Unknown]
  - Abdominal pain [Unknown]
  - Blood creatinine increased [Unknown]
  - Liver function test abnormal [Unknown]
  - Aspartate aminotransferase increased [Not Recovered/Not Resolved]
  - Pain [Unknown]

NARRATIVE: CASE EVENT DATE: 20200714
